FAERS Safety Report 8580890-1 (Version None)
Quarter: 2012Q3

REPORT INFORMATION
  Report Type: 
  Country: None (occurrence: None)
  Receive Date: 20120809
  Receipt Date: 20120730
  Transmission Date: 20120928
  Serious: Yes (Hospitalization)
  Sender: FDA-Public Use
  Company Number: US-BAYER-2012-006447

PATIENT
  Age: 48 Year
  Sex: Female
  Weight: 140.14 kg

DRUGS (2)
  1. PROTONIX [Concomitant]
     Indication: PROPHYLAXIS
  2. YAZ [Suspect]
     Dosage: UNK
     Dates: start: 20060101, end: 20080101

REACTIONS (2)
  - INJURY [None]
  - CEREBROVASCULAR ACCIDENT [None]
